FAERS Safety Report 12354532 (Version 1)
Quarter: 2016Q2

REPORT INFORMATION
  Report Type: Spontaneous
  Country: US (occurrence: US)
  Receive Date: 20160511
  Receipt Date: 20160511
  Transmission Date: 20160815
  Serious: Yes (Hospitalization, Other)
  Sender: FDA-Public Use
  Company Number: US-GLAXOSMITHKLINE-US2016062334

PATIENT
  Age: 47 Year
  Sex: Female

DRUGS (7)
  1. VENTOLIN HFA [Suspect]
     Active Substance: ALBUTEROL SULFATE
     Indication: CHRONIC OBSTRUCTIVE PULMONARY DISEASE
  2. ADVAIR DISKUS [Suspect]
     Active Substance: FLUTICASONE PROPIONATE\SALMETEROL XINAFOATE
     Indication: CHRONIC OBSTRUCTIVE PULMONARY DISEASE
  3. ADVAIR DISKUS [Suspect]
     Active Substance: FLUTICASONE PROPIONATE\SALMETEROL XINAFOATE
     Indication: ASTHMA
  4. VENTOLIN HFA [Suspect]
     Active Substance: ALBUTEROL SULFATE
     Indication: MULTIPLE ALLERGIES
     Dosage: 1 PUFF(S), QID
     Route: 055
  5. ADVAIR DISKUS [Suspect]
     Active Substance: FLUTICASONE PROPIONATE\SALMETEROL XINAFOATE
     Indication: MULTIPLE ALLERGIES
     Dosage: 1 PUFF(S), BID
     Route: 055
  6. VENTOLIN HFA [Suspect]
     Active Substance: ALBUTEROL SULFATE
     Indication: ASTHMA
  7. ALLEGRA [Suspect]
     Active Substance: FEXOFENADINE HYDROCHLORIDE
     Indication: MULTIPLE ALLERGIES
     Dosage: UNK, U

REACTIONS (15)
  - Vein disorder [Unknown]
  - Medication error [Unknown]
  - Somnolence [Unknown]
  - Chest discomfort [Not Recovered/Not Resolved]
  - Inability to afford medication [Unknown]
  - Dyspnoea [Unknown]
  - Surgery [Recovered/Resolved]
  - Hysterectomy [Recovered/Resolved]
  - Inappropriate schedule of drug administration [Unknown]
  - Asthma [Unknown]
  - Atypical pneumonia [Recovered/Resolved]
  - Overdose [Recovered/Resolved]
  - Drug dose omission [Unknown]
  - Abdominal pain upper [Unknown]
  - Lower respiratory tract infection [Unknown]

NARRATIVE: CASE EVENT DATE: 201410
